FAERS Safety Report 6975990-3 (Version None)
Quarter: 2010Q3

REPORT INFORMATION
  Report Type: 
  Country: None (occurrence: None)
  Receive Date: 20100910
  Receipt Date: 20090429
  Transmission Date: 20110219
  Serious: No
  Sender: FDA-Public Use
  Company Number: US-WYE-H08918509

PATIENT
  Sex: Female
  Weight: 52.21 kg

DRUGS (5)
  1. PRISTIQ [Suspect]
     Indication: DEPRESSION
     Dosage: ^TWO EVERY OTHER DAY AND OTHER DAYS ONE DAY^
     Route: 048
     Dates: start: 20090326
  2. MUCOMYST [Concomitant]
  3. ATIVAN [Concomitant]
  4. REMERON [Concomitant]
  5. ZYPREXA [Concomitant]

REACTIONS (1)
  - MEDICATION RESIDUE [None]
